FAERS Safety Report 4483536-7 (Version None)
Quarter: 2004Q4

REPORT INFORMATION
  Report Type: 
  Country: None (occurrence: None)
  Receive Date: 20041019
  Receipt Date: 20041019
  Transmission Date: 20050328
  Serious: Yes (Hospitalization)
  Sender: FDA-Public Use
  Company Number: None

PATIENT
  Age: 53 Year
  Sex: Male
  Weight: 87.3 kg

DRUGS (7)
  1. ASPIRIN [Suspect]
     Indication: HEADACHE
     Dosage: 325MG PRN ORAL
     Route: 048
  2. AMOXICILIN [Concomitant]
  3. FELODIPINE [Concomitant]
  4. HYDROXYZINE [Concomitant]
  5. LORATADINE [Concomitant]
  6. TERAZOSIN HCL [Concomitant]
  7. TRAMADOL HCL [Concomitant]

REACTIONS (6)
  - ASTHENIA [None]
  - DIZZINESS [None]
  - FAECES DISCOLOURED [None]
  - HAEMATEMESIS [None]
  - HAEMATOCRIT DECREASED [None]
  - HAEMOGLOBIN DECREASED [None]
